FAERS Safety Report 5815566-4 (Version None)
Quarter: 2008Q3

REPORT INFORMATION
  Report Type: 
  Country: None (occurrence: None)
  Receive Date: 20080718
  Receipt Date: 20080708
  Transmission Date: 20090109
  Serious: Yes (Hospitalization, Other)
  Sender: FDA-Public Use
  Company Number: US-PFIZER INC-2008058340

PATIENT
  Sex: Female
  Weight: 104.54 kg

DRUGS (6)
  1. LYRICA [Suspect]
     Route: 048
     Dates: start: 20070901, end: 20071001
  2. ALLOPURINOL [Concomitant]
  3. DEMADEX [Concomitant]
  4. ATENOLOL [Concomitant]
  5. LIPITOR [Concomitant]
  6. ALL OTHER THERAPEUTIC PRODUCTS [Concomitant]

REACTIONS (5)
  - EYE SWELLING [None]
  - KNEE OPERATION [None]
  - LIP SWELLING [None]
  - OEDEMA PERIPHERAL [None]
  - SWELLING FACE [None]
